FAERS Safety Report 8109669-1 (Version None)
Quarter: 2012Q1

REPORT INFORMATION
  Report Type: 
  Country: None (occurrence: None)
  Receive Date: 20120202
  Receipt Date: 20120120
  Transmission Date: 20120608
  Serious: Yes (Other)
  Sender: FDA-Public Use
  Company Number: GB-MYLANLABS-2011S1019554

PATIENT
  Age: 21 Year
  Sex: Female

DRUGS (4)
  1. CETIRIZINE [Suspect]
     Indication: SWELLING
     Route: 048
     Dates: start: 20061116, end: 20110505
  2. LAMICTAL [Concomitant]
     Indication: PRODUCT USED FOR UNKNOWN INDICATION
  3. TERBUTALINE [Concomitant]
     Indication: ASTHMA
     Route: 055
     Dates: start: 19970101, end: 20110830
  4. CETIRIZINE [Suspect]
     Indication: HYPERSENSITIVITY
     Route: 048
     Dates: start: 20061116, end: 20110505

REACTIONS (1)
  - EPILEPSY [None]
